FAERS Safety Report 5529613-0 (Version None)
Quarter: 2007Q4

REPORT INFORMATION
  Report Type: 
  Country: None (occurrence: None)
  Receive Date: 20071129
  Receipt Date: 20071119
  Transmission Date: 20080405
  Serious: Yes (Other)
  Sender: FDA-Public Use
  Company Number: US-PFIZER INC-2007081914

PATIENT
  Sex: Male
  Weight: 73.5 kg

DRUGS (11)
  1. LYRICA [Suspect]
     Indication: NEUROPATHY PERIPHERAL
  2. PRILOSEC [Concomitant]
  3. CELEBREX [Concomitant]
  4. FENTANYL [Concomitant]
     Dosage: TEXT:EVERY 72 HOURS
  5. ACETAMINOPHEN AND OXYCODONE HCL [Concomitant]
  6. CATAPRES [Concomitant]
  7. BUSPAR [Concomitant]
  8. ALPRAZOLAM [Concomitant]
  9. MIRTAZAPINE [Concomitant]
  10. ZANAFLEX [Concomitant]
  11. LIPITOR [Concomitant]

REACTIONS (7)
  - BENIGN PROSTATIC HYPERPLASIA [None]
  - DRUG INEFFECTIVE [None]
  - DRY EYE [None]
  - PAIN [None]
  - PERIPHERAL COLDNESS [None]
  - SOMNOLENCE [None]
  - VISION BLURRED [None]
